FAERS Safety Report 9354221 (Version 1)
Quarter: 2013Q2

REPORT INFORMATION
  Report Type: Spontaneous
  Country: FR (occurrence: FR)
  Receive Date: 20130618
  Receipt Date: 20130618
  Transmission Date: 20140414
  Serious: Yes (Life-Threatening, Hospitalization, Disabling)
  Sender: FDA-Public Use
  Company Number: FR-GILEAD-2013-0077166

PATIENT
  Age: 60 Year
  Sex: Male

DRUGS (4)
  1. VIREAD [Suspect]
     Indication: HIV INFECTION
     Dosage: 245
     Route: 048
     Dates: start: 20030130, end: 20130415
  2. SUSTIVA [Suspect]
     Indication: HIV INFECTION
     Dosage: 600 MG, UNK
     Dates: start: 20080418, end: 20120415
  3. REYATAZ [Suspect]
     Indication: HIV INFECTION
     Dosage: 300 MG, UNK
     Route: 048
     Dates: start: 20080603
  4. NORVIR [Suspect]
     Indication: HIV INFECTION
     Dosage: UNK
     Route: 048
     Dates: start: 20090123

REACTIONS (1)
  - Tubulointerstitial nephritis [Recovered/Resolved with Sequelae]
